FAERS Safety Report 9390308 (Version 1)
Quarter: 2013Q3

REPORT INFORMATION
  Report Type: Spontaneous
  Country: FR (occurrence: FR)
  Receive Date: 20130709
  Receipt Date: 20130709
  Transmission Date: 20140515
  Serious: Yes (Hospitalization, Other)
  Sender: FDA-Public Use
  Company Number: FR-ASTRAZENECA-2013SE25536

PATIENT
  Age: 7179 Day
  Sex: Male
  Weight: 89 kg

DRUGS (7)
  1. XEROQUEL [Suspect]
     Indication: SCHIZOPHRENIA
     Route: 048
     Dates: start: 20130405, end: 20130409
  2. HALDOL [Suspect]
     Indication: SCHIZOPHRENIA
     Route: 048
     Dates: start: 20130402, end: 20130410
  3. THERALENE [Concomitant]
     Indication: INSOMNIA
     Route: 048
     Dates: start: 20130328
  4. AEQUASYAL [Concomitant]
     Indication: DRY MOUTH
     Route: 048
     Dates: start: 20130402
  5. LEPTICUR [Concomitant]
     Indication: DYSKINESIA
     Route: 048
     Dates: start: 20110527
  6. PEVARYL [Concomitant]
     Dates: start: 20130405, end: 20130409
  7. FONX [Concomitant]
     Dates: start: 20130402, end: 20130416

REACTIONS (1)
  - Drug eruption [Recovered/Resolved]
